FAERS Safety Report 14001832 (Version 4)
Quarter: 2018Q1

REPORT INFORMATION
  Report Type: Spontaneous
  Country: US (occurrence: US)
  Receive Date: 20170922
  Receipt Date: 20180221
  Transmission Date: 20180508
  Serious: Yes (Hospitalization)
  Sender: FDA-Public Use
  Company Number: US-JNJFOC-20170907956

PATIENT
  Sex: Male

DRUGS (1)
  1. XARELTO [Suspect]
     Active Substance: RIVAROXABAN
     Indication: DEEP VEIN THROMBOSIS
     Route: 048
     Dates: start: 20151227, end: 20170811

REACTIONS (4)
  - Urinary tract infection [Not Recovered/Not Resolved]
  - Thrombosis [Unknown]
  - Muscular weakness [Unknown]
  - Gingival bleeding [Recovered/Resolved]
